FAERS Safety Report 22038738 (Version 2)
Quarter: 2023Q1

REPORT INFORMATION
  Report Type: Spontaneous
  Country: GB (occurrence: GB)
  Receive Date: 20230227
  Receipt Date: 20230228
  Transmission Date: 20230418
  Serious: Yes (Death, Life-Threatening)
  Sender: FDA-Public Use
  Company Number: None

PATIENT
  Age: 48 Year
  Sex: Male

DRUGS (1)
  1. OMEPRAZOLE [Suspect]
     Active Substance: OMEPRAZOLE
     Indication: Dyspepsia
     Dosage: 20MG DAILY; ;
     Dates: start: 20070824, end: 20200616

REACTIONS (4)
  - Medication error [Fatal]
  - Gastric cancer stage III [Fatal]
  - COVID-19 [Fatal]
  - Vomiting [Fatal]

NARRATIVE: CASE EVENT DATE: 20200715
